FAERS Safety Report 17556969 (Version 2)
Quarter: 2021Q1

REPORT INFORMATION
  Report Type: Spontaneous
  Country: US (occurrence: US)
  Receive Date: 20200318
  Receipt Date: 20210304
  Transmission Date: 20210419
  Serious: No
  Sender: FDA-Public Use
  Company Number: US-ENDO PHARMACEUTICALS INC-2019-104767

PATIENT
  Sex: Female

DRUGS (2)
  1. XIAFLEX [Suspect]
     Active Substance: COLLAGENASE CLOSTRIDIUM HISTOLYTICUM
     Indication: DUPUYTREN^S CONTRACTURE
     Dosage: UNK UNKNOWN, UNKNOWN
     Route: 026
  2. XIAFLEX [Suspect]
     Active Substance: COLLAGENASE CLOSTRIDIUM HISTOLYTICUM
     Dosage: UNK UNKNOWN, UNKNOWN
     Route: 026
     Dates: start: 202011

REACTIONS (5)
  - Drug ineffective [Unknown]
  - Inflammation [Unknown]
  - Wrong technique in product usage process [Unknown]
  - Dupuytren^s contracture [Unknown]
  - Contusion [Unknown]

NARRATIVE: CASE EVENT DATE: 202011
